FAERS Safety Report 8341585-2 (Version None)
Quarter: 2012Q2

REPORT INFORMATION
  Report Type: 
  Country: None (occurrence: None)
  Receive Date: 20120507
  Receipt Date: 20120501
  Transmission Date: 20120825
  Serious: No
  Sender: FDA-Public Use
  Company Number: US-PFIZER INC-2012080983

PATIENT
  Sex: Female
  Weight: 58.05 kg

DRUGS (8)
  1. PREMARIN [Suspect]
     Indication: OSTEOPOROSIS
  2. PREMARIN [Suspect]
     Indication: HYSTERECTOMY
     Dosage: 0.625 MG, 1X/DAY
     Route: 048
     Dates: start: 19741204, end: 20120101
  3. PREMARIN [Suspect]
     Indication: OVARIAN DISORDER
  4. SIMVASTATIN [Concomitant]
     Dosage: 5 MG, UNK
  5. NEXIUM [Concomitant]
     Indication: GASTROOESOPHAGEAL REFLUX DISEASE
     Dosage: 40 MG, 2X/DAY
  6. ZOLOFT [Concomitant]
     Dosage: 50 MG, UNK
  7. PREMARIN [Suspect]
     Indication: IRRITABILITY
  8. CELEBREX [Suspect]
     Indication: OSTEOARTHRITIS
     Dosage: 200 MG, 2X/DAY
     Route: 048
     Dates: start: 19990101

REACTIONS (3)
  - NIGHT SWEATS [None]
  - HYPERHIDROSIS [None]
  - HOT FLUSH [None]
